FAERS Safety Report 5920211-3 (Version None)
Quarter: 2008Q4

REPORT INFORMATION
  Report Type: 
  Country: None (occurrence: None)
  Receive Date: 20081016
  Receipt Date: 20080321
  Transmission Date: 20090506
  Serious: No
  Sender: FDA-Public Use
  Company Number: A0718191A

PATIENT
  Age: 59 Year
  Sex: Female
  Weight: 68.2 kg

DRUGS (6)
  1. CEFTIN [Suspect]
     Indication: DRUG USE FOR UNKNOWN INDICATION
     Route: 065
  2. EXCEDRIN (MIGRAINE) [Concomitant]
     Indication: HEADACHE
     Dosage: 1TAB AS REQUIRED
     Route: 048
     Dates: start: 20070403
  3. ASPIRIN [Concomitant]
     Indication: PROPHYLAXIS
     Route: 048
  4. FOSAMAX [Concomitant]
     Indication: OSTEOPENIA
     Dosage: 70MG WEEKLY
     Route: 048
  5. GLUCOSAMINE [Concomitant]
     Indication: ARTHRITIS
     Dates: start: 20040101
  6. PREMPRO [Concomitant]
     Indication: POSTMENOPAUSE

REACTIONS (1)
  - RASH [None]
